FAERS Safety Report 5455944-9 (Version None)
Quarter: 2007Q3

REPORT INFORMATION
  Report Type: 
  Country: None (occurrence: None)
  Receive Date: 20070918
  Receipt Date: 20070330
  Transmission Date: 20080115
  Serious: Yes (Other)
  Sender: FDA-Public Use
  Company Number: US-ASTRAZENECA-2006UW23874

PATIENT
  Age: 56 Year
  Sex: Male
  Weight: 113.6 kg

DRUGS (8)
  1. SEROQUEL [Suspect]
     Indication: TREMOR
     Dosage: 3.5 TABLETS QD
     Route: 048
     Dates: start: 19990101
  2. SEROQUEL [Suspect]
     Indication: SCHIZOAFFECTIVE DISORDER
     Dosage: 3.5 TABLETS QD
     Route: 048
     Dates: start: 19990101
  3. SEROQUEL [Suspect]
     Indication: BIPOLAR DISORDER
     Dosage: 3.5 TABLETS QD
     Route: 048
     Dates: start: 19990101
  4. ZYPREXA [Suspect]
     Dates: start: 19990101
  5. NAVANE [Concomitant]
     Dates: start: 19890101
  6. RISPERDAL [Concomitant]
     Dates: start: 19920101
  7. STELAZINE [Concomitant]
     Dates: start: 19860101
  8. THORAZINE [Concomitant]
     Dates: start: 19810101

REACTIONS (3)
  - DIABETES MELLITUS [None]
  - DIABETIC KETOACIDOSIS [None]
  - KETOACIDOSIS [None]
